FAERS Safety Report 12780650 (Version 1)
Quarter: 2016Q3

REPORT INFORMATION
  Report Type: Spontaneous
  Country: US (occurrence: US)
  Receive Date: 20160926
  Receipt Date: 20160926
  Transmission Date: 20161109
  Serious: No
  Sender: FDA-Public Use
  Company Number: None

PATIENT
  Sex: Female

DRUGS (2)
  1. BENADRYL [Suspect]
     Active Substance: DIPHENHYDRAMINE HYDROCHLORIDE
     Route: 048
  2. GLUCOSE TABLETS [Suspect]
     Active Substance: DEXTROSE

REACTIONS (2)
  - Contraindicated product administered [None]
  - Reaction to drug excipients [None]

NARRATIVE: CASE EVENT DATE: 20160914
